FAERS Safety Report 18302472 (Version 1)
Quarter: 2020Q3

REPORT INFORMATION
  Report Type: Report from Study
  Country: SI (occurrence: SI)
  Receive Date: 20200923
  Receipt Date: 20200923
  Transmission Date: 20201103
  Serious: Yes (Hospitalization)
  Sender: FDA-Public Use
  Company Number: SI-TAKEDA-2020TUS039685

PATIENT
  Age: 61 Year
  Sex: Male

DRUGS (1)
  1. VEDOLIZUMAB [Suspect]
     Active Substance: VEDOLIZUMAB
     Indication: COLITIS ULCERATIVE
     Dosage: 300 MILLIGRAM
     Route: 042
     Dates: start: 202002

REACTIONS (6)
  - Abdominal pain lower [Unknown]
  - Malaise [Unknown]
  - Diarrhoea haemorrhagic [Unknown]
  - Mucous stools [Unknown]
  - Body temperature increased [Unknown]
  - Campylobacter test positive [Unknown]

NARRATIVE: CASE EVENT DATE: 20200910
